FAERS Safety Report 4496737-9 (Version None)
Quarter: 2004Q4

REPORT INFORMATION
  Report Type: 
  Country: None (occurrence: None)
  Receive Date: 20041109
  Receipt Date: 20030624
  Transmission Date: 20050328
  Serious: Yes (Disabling)
  Sender: FDA-Public Use
  Company Number: DE-ROCHE-340824

PATIENT
  Age: 44 Year
  Sex: Male

DRUGS (4)
  1. PEG-INTERFERON ALFA 2A (RO 25-8310) [Suspect]
     Indication: HEPATITIS C
     Route: 058
     Dates: start: 20030113, end: 20030505
  2. RIBAVIRIN [Suspect]
     Indication: HEPATITIS C
     Route: 048
     Dates: start: 20030113, end: 20030514
  3. AMANTADINE [Suspect]
     Indication: HEPATITIS C
     Route: 048
     Dates: start: 20030113, end: 20030514
  4. PARACETAMOL [Concomitant]
     Route: 048
     Dates: start: 20030113, end: 20030514

REACTIONS (4)
  - CYANOSIS [None]
  - PARAESTHESIA [None]
  - SKIN DISCOLOURATION [None]
  - VASOSPASM [None]
